FAERS Safety Report 5964978-7 (Version None)
Quarter: 2008Q4

REPORT INFORMATION
  Report Type: 
  Country: None (occurrence: None)
  Receive Date: 20081124
  Receipt Date: 20081124
  Transmission Date: 20090506
  Serious: Yes (Other)
  Sender: FDA-Public Use
  Company Number: None

PATIENT
  Age: 68 Year
  Sex: Female
  Weight: 91.173 kg

DRUGS (2)
  1. DOXYCYCLINE [Suspect]
     Indication: HERPES ZOSTER
     Dosage: 1 TABLET/100 MG 2X DAILY PO
     Route: 048
     Dates: start: 20070816, end: 20070826
  2. RIFAMPIN [Suspect]
     Indication: HERPES ZOSTER
     Dosage: 1 TABLET/300 MG 2X DAILY PO
     Route: 048
     Dates: start: 20070816, end: 20070826

REACTIONS (11)
  - DIARRHOEA [None]
  - DIZZINESS [None]
  - DRUG HYPERSENSITIVITY [None]
  - FUNGAL SKIN INFECTION [None]
  - HEADACHE [None]
  - INFLUENZA LIKE ILLNESS [None]
  - LISTLESS [None]
  - MALAISE [None]
  - OEDEMA PERIPHERAL [None]
  - SOMNOLENCE [None]
  - VOMITING [None]
